FAERS Safety Report 17994668 (Version 1)
Quarter: 2020Q3

REPORT INFORMATION
  Report Type: Spontaneous
  Country: US (occurrence: US)
  Receive Date: 20200708
  Receipt Date: 20200708
  Transmission Date: 20201103
  Serious: Yes (Other)
  Sender: FDA-Public Use
  Company Number: US-PFIZER INC-2020259898

PATIENT

DRUGS (2)
  1. DONNATAL [Suspect]
     Active Substance: ATROPINE SULFATE\HYOSCYAMINE SULFATE\PHENOBARBITAL\SCOPOLAMINE HYDROBROMIDE
     Indication: RELAXATION THERAPY
     Dosage: UNK
  2. XANAX [Suspect]
     Active Substance: ALPRAZOLAM
     Indication: RELAXATION THERAPY
     Dosage: UNK, AS NEEDED, (ONLY WHEN NEEDED)
     Dates: start: 1990

REACTIONS (1)
  - Breast cancer [Unknown]
